FAERS Safety Report 15934263 (Version 1)
Quarter: 2019Q1

REPORT INFORMATION
  Report Type: Report from Study
  Country: US (occurrence: US)
  Receive Date: 20190207
  Receipt Date: 20190207
  Transmission Date: 20190417
  Serious: Yes (Other)
  Sender: FDA-Public Use
  Company Number: PHHY2019US027092

PATIENT
  Age: 29 Year
  Sex: Female

DRUGS (30)
  1. LORLATINIB [Suspect]
     Active Substance: LORLATINIB
     Indication: METASTASES TO CENTRAL NERVOUS SYSTEM
  2. ACETAMINOPHEN. [Concomitant]
     Active Substance: ACETAMINOPHEN
     Indication: PAIN
     Dosage: 1 DF, PRN (Q4H) 0 REFILL
     Route: 048
  3. POTASSIUM CHLORIDE. [Concomitant]
     Active Substance: POTASSIUM CHLORIDE
     Indication: PRODUCT USED FOR UNKNOWN INDICATION
     Dosage: 15 ML, BID (900 ML, 0 REFILL)
     Route: 048
  4. LEVETIRACETAM. [Concomitant]
     Active Substance: LEVETIRACETAM
     Indication: PRODUCT USED FOR UNKNOWN INDICATION
     Dosage: 1 DF, BID (60 TAB, O REFILL)
     Route: 048
  5. METOCLOPRAMIDE. [Concomitant]
     Active Substance: METOCLOPRAMIDE
     Indication: NAUSEA
     Dosage: 1 DF, PRN (0 REFILL)
     Route: 048
  6. CARBOPLATIN. [Concomitant]
     Active Substance: CARBOPLATIN
     Indication: PRODUCT USED FOR UNKNOWN INDICATION
     Dosage: 75 ML (325 ML/HR), QD
     Route: 042
     Dates: start: 20170127
  7. FENTANYL. [Concomitant]
     Active Substance: FENTANYL
     Indication: PRODUCT USED FOR UNKNOWN INDICATION
     Dosage: 1 DF, Q72H 10 PATCHS, 0 REFILL
     Route: 061
  8. DEPOCYT [Concomitant]
     Active Substance: CYTARABINE
     Indication: PRODUCT USED FOR UNKNOWN INDICATION
     Dosage: 5 ML (0 ML/HR), (DAYS 1)
     Route: 037
     Dates: start: 20170131
  9. BRIGATINIB [Suspect]
     Active Substance: BRIGATINIB
     Indication: LUNG ADENOCARCINOMA
     Route: 065
  10. LORAZEPAM. [Concomitant]
     Active Substance: LORAZEPAM
     Indication: ANXIETY
     Dosage: 1 DF, PRN (Q6H-INT) 0 REFILL
     Route: 048
  11. DRONABINOL. [Concomitant]
     Active Substance: DRONABINOL
     Indication: NAUSEA
     Dosage: 1 DF, PRN (BID) (30 DAYS)
     Route: 048
  12. METHYLPHENIDATE. [Concomitant]
     Active Substance: METHYLPHENIDATE
     Indication: PRODUCT USED FOR UNKNOWN INDICATION
     Dosage: 1 DF, QD (0 REFILL)
     Route: 048
  13. XGEVA [Concomitant]
     Active Substance: DENOSUMAB
     Dosage: 1.7 ML, Q4W (MONTHS 1 TO 6)
     Route: 058
     Dates: start: 20170505
  14. PEMETREXED. [Concomitant]
     Active Substance: PEMETREXED
     Indication: PRODUCT USED FOR UNKNOWN INDICATION
     Dosage: 29.6 ML, QD (600 ML/HR)
     Route: 042
     Dates: start: 20170127
  15. HYDROCORTISONE. [Concomitant]
     Active Substance: HYDROCORTISONE
     Indication: ANAPHYLACTIC REACTION
     Dosage: 100 MG, PRN (TODAY, DAYS 1)
     Route: 042
  16. DEXAMETHASONE. [Concomitant]
     Active Substance: DEXAMETHASONE
     Dosage: 1 ML (10 MG), (DAYS 1)
     Route: 042
  17. DEPOCYT [Concomitant]
     Active Substance: CYTARABINE
     Dosage: 5 ML (0 ML/HR), (DAYS 1)
     Route: 037
     Dates: start: 20170214
  18. GRANISETRON [Concomitant]
     Active Substance: GRANISETRON
     Indication: PRODUCT USED FOR UNKNOWN INDICATION
     Dosage: 1 MG, (DAYS 1)
     Route: 048
  19. DEXAMETHASONE. [Concomitant]
     Active Substance: DEXAMETHASONE
     Indication: ANAPHYLACTIC REACTION
     Dosage: 1 DF, Q12H (DAYS 1)
     Route: 048
  20. BRIGATINIB [Suspect]
     Active Substance: BRIGATINIB
     Indication: METASTASES TO CENTRAL NERVOUS SYSTEM
  21. HYDROCODONE [Concomitant]
     Active Substance: HYDROCODONE
     Indication: PAIN
     Dosage: 1 DF, PRN (Q#H)
     Route: 048
  22. XGEVA [Concomitant]
     Active Substance: DENOSUMAB
     Indication: PRODUCT USED FOR UNKNOWN INDICATION
     Dosage: 1.7 ML, Q4W (MONTHS 1 TO 6)
     Route: 058
     Dates: start: 20161118
  23. LORLATINIB [Suspect]
     Active Substance: LORLATINIB
     Indication: LUNG ADENOCARCINOMA
     Route: 065
  24. DRONABINOL. [Concomitant]
     Active Substance: DRONABINOL
     Indication: VOMITING
  25. GRANISETRON [Concomitant]
     Active Substance: GRANISETRON
     Indication: PRODUCT USED FOR UNKNOWN INDICATION
     Dosage: 1 ML (1 MG), (DAYS 1)
     Route: 042
  26. DIPHENHYDRAMINE. [Concomitant]
     Active Substance: DIPHENHYDRAMINE
     Indication: ANAPHYLACTIC REACTION
     Dosage: 1 ML, PRN (TODAY, DAYS 1)
     Route: 042
  27. ZOPHREN [Suspect]
     Active Substance: ONDANSETRON
     Indication: NAUSEA
     Dosage: 8 MG, TID
     Route: 048
  28. ESOMEPRAZOLE. [Concomitant]
     Active Substance: ESOMEPRAZOLE MAGNESIUM
     Indication: PRODUCT USED FOR UNKNOWN INDICATION
     Dosage: 1 DF, QD (30 CAP) 0 REFILL
     Route: 048
  29. METOCLOPRAMIDE. [Concomitant]
     Active Substance: METOCLOPRAMIDE
     Indication: VOMITING
     Dosage: 1 DF, Q4H (PRN)
     Route: 042
  30. DEXAMETHASONE. [Concomitant]
     Active Substance: DEXAMETHASONE
     Indication: ANAPHYLACTIC REACTION
     Dosage: 1 ML (4 MG), ONCE SCHEDULED, DAYS 1
     Route: 042

REACTIONS (22)
  - Back pain [Unknown]
  - Metastases to meninges [Not Recovered/Not Resolved]
  - Thoracic vertebral fracture [Not Recovered/Not Resolved]
  - Lung adenocarcinoma [Unknown]
  - Malignant neoplasm progression [Unknown]
  - Headache [Not Recovered/Not Resolved]
  - Cerebral calcification [Unknown]
  - Protein urine present [Unknown]
  - Drug ineffective [Unknown]
  - Muscular weakness [Unknown]
  - Tremor [Unknown]
  - Osteopenia [Unknown]
  - Haemoglobin decreased [Unknown]
  - Body height decreased [Unknown]
  - Hepatic lesion [Not Recovered/Not Resolved]
  - Pleural fibrosis [Not Recovered/Not Resolved]
  - Osteochondroma [Unknown]
  - Intervertebral disc space narrowing [Not Recovered/Not Resolved]
  - Pulmonary fibrosis [Not Recovered/Not Resolved]
  - Muscle twitching [Unknown]
  - Hepatic cyst [Unknown]
  - Haematocrit decreased [Unknown]

NARRATIVE: CASE EVENT DATE: 20170705
